FAERS Safety Report 9482406 (Version 2)
Quarter: 2013Q4

REPORT INFORMATION
  Report Type: Spontaneous
  Country: US (occurrence: US)
  Receive Date: 20130828
  Receipt Date: 20131107
  Transmission Date: 20140711
  Serious: Yes (Other)
  Sender: FDA-Public Use
  Company Number: US-PFIZER INC-2013246950

PATIENT
  Age: 69 Year
  Sex: Male

DRUGS (2)
  1. TIKOSYN [Suspect]
     Dosage: UNK
  2. LASIX [Suspect]
     Dosage: UNK

REACTIONS (2)
  - Waist circumference increased [Unknown]
  - Weight increased [Unknown]
